FAERS Safety Report 6639030-8 (Version None)
Quarter: 2010Q1

REPORT INFORMATION
  Report Type: 
  Country: None (occurrence: None)
  Receive Date: 20100317
  Receipt Date: 20100309
  Transmission Date: 20100710
  Serious: Yes (Hospitalization)
  Sender: FDA-Public Use
  Company Number: CH-ASTRAZENECA-2010SE03463

PATIENT
  Age: 824 Month
  Sex: Male
  Weight: 80 kg

DRUGS (6)
  1. ATACAND [Suspect]
     Indication: HYPERTENSION
     Route: 048
     Dates: start: 20030302, end: 20100122
  2. ASPIRIN CARDIAC [Concomitant]
     Indication: CORONARY ARTERY DISEASE
     Route: 065
     Dates: start: 20050101
  3. CONCOR 5 [Concomitant]
     Indication: HYPERTENSION
     Route: 065
     Dates: start: 20050101
  4. PRADIF T [Concomitant]
     Indication: BENIGN PROSTATIC HYPERPLASIA
     Route: 048
     Dates: start: 20050101
  5. SERETIDE 250 [Concomitant]
     Indication: CHRONIC OBSTRUCTIVE PULMONARY DISEASE
     Dosage: 2 X DAILY.
     Route: 055
     Dates: start: 20050101
  6. SERETIDE 250 [Concomitant]
     Indication: ASTHMA
     Dosage: 2 X DAILY.
     Route: 055
     Dates: start: 20050101

REACTIONS (3)
  - BRONCHIECTASIS [None]
  - PNEUMONIA HAEMOPHILUS [None]
  - PNEUMONIA PNEUMOCOCCAL [None]
